FAERS Safety Report 12202431 (Version 1)
Quarter: 2016Q1

REPORT INFORMATION
  Report Type: Spontaneous
  Country: FR (occurrence: FR)
  Receive Date: 20160322
  Receipt Date: 20160322
  Transmission Date: 20160526
  Serious: Yes (Hospitalization, Other)
  Sender: FDA-Public Use
  Company Number: FR-B.I. PHARMACEUTICALS,INC./RIDGEFIELD-2016-BI-16710FF

PATIENT
  Age: 82 Year
  Sex: Male

DRUGS (2)
  1. PRADAXA [Suspect]
     Active Substance: DABIGATRAN ETEXILATE MESYLATE
     Indication: ATRIAL FIBRILLATION
     Dosage: 110 MG
     Route: 048
  2. PLATIN [Suspect]
     Active Substance: CISPLATIN
     Indication: CARCINOID TUMOUR PULMONARY
     Route: 065
     Dates: start: 201512, end: 201602

REACTIONS (2)
  - Thrombocytopenia [Not Recovered/Not Resolved]
  - Carcinoid tumour pulmonary [Not Recovered/Not Resolved]

NARRATIVE: CASE EVENT DATE: 201510
